FAERS Safety Report 4553247-8 (Version None)
Quarter: 2005Q1

REPORT INFORMATION
  Report Type: 
  Country: None (occurrence: None)
  Receive Date: 20050111
  Receipt Date: 20050111
  Transmission Date: 20050727
  Serious: Yes (Other)
  Sender: FDA-Public Use
  Company Number: None

PATIENT
  Age: 38 Year
  Sex: Male
  Weight: 100.6078 kg

DRUGS (6)
  1. STRIANT [Suspect]
     Indication: HYPOGONADISM
     Dosage: 30MG BID
  2. GLYBURIDE [Concomitant]
  3. DEPAKOTE [Concomitant]
  4. ZESTORETIC [Concomitant]
  5. LANTUS [Concomitant]
  6. ... [Concomitant]

REACTIONS (2)
  - RASH GENERALISED [None]
  - RASH PRURITIC [None]
